FAERS Safety Report 8202965-9 (Version None)
Quarter: 2012Q1

REPORT INFORMATION
  Report Type: 
  Country: None (occurrence: None)
  Receive Date: 20120312
  Receipt Date: 20120308
  Transmission Date: 20120608
  Serious: Yes (Other)
  Sender: FDA-Public Use
  Company Number: US-PFIZER INC-2012062914

PATIENT

DRUGS (1)
  1. CADUET [Suspect]
     Dosage: 10/40 MG, TAKE ONE EVERY H.S

REACTIONS (2)
  - FALL [None]
  - INJURY [None]
